FAERS Safety Report 14278392 (Version 1)
Quarter: 2017Q4

REPORT INFORMATION
  Report Type: Spontaneous
  Country: GB (occurrence: GB)
  Receive Date: 20171211
  Receipt Date: 20171211
  Transmission Date: 20180321
  Serious: Yes (Life-Threatening, Hospitalization)
  Sender: FDA-Public Use
  Company Number: GB-OTSUKA-KJ20121685

PATIENT

DRUGS (3)
  1. DEPIXOL NOS [Suspect]
     Active Substance: FLUPENTIXOL
     Indication: SCHIZOAFFECTIVE DISORDER
     Route: 030
     Dates: end: 20120118
  2. ARIPIPRAZOLE. [Suspect]
     Active Substance: ARIPIPRAZOLE
     Indication: SCHIZOAFFECTIVE DISORDER
     Route: 048
     Dates: start: 20111225, end: 20120118
  3. FLUPENTIXOL [Suspect]
     Active Substance: FLUPENTIXOL
     Indication: SCHIZOAFFECTIVE DISORDER
     Dosage: 75 MG, QWK
     Route: 030
     Dates: end: 20120118

REACTIONS (1)
  - Thrombocytopenia [Recovering/Resolving]

NARRATIVE: CASE EVENT DATE: 20120118
